FAERS Safety Report 8557327 (Version 3)
Quarter: 2012Q4

REPORT INFORMATION
  Report Type: Report from Study
  Country: DE (occurrence: DE)
  Receive Date: 20120511
  Receipt Date: 20120907
  Transmission Date: 20130627
  Serious: Yes (Death, Hospitalization)
  Sender: FDA-Public Use
  Company Number: DE-ABBOTT-12P-062-0933602-00

PATIENT
  Age: 55 Year
  Sex: Male
  Weight: 95 kg

DRUGS (3)
  1. HUMIRA [Suspect]
     Indication: PSORIATIC ARTHROPATHY
     Route: 058
     Dates: start: 20120107, end: 201202
  2. METHOTREXATE [Concomitant]
     Indication: PSORIATIC ARTHROPATHY
     Dates: start: 200904, end: 20120323
  3. IBUPROFEN [Concomitant]
     Indication: PSORIATIC ARTHROPATHY
     Dates: start: 201009, end: 20120323

REACTIONS (4)
  - Cardiac failure [Fatal]
  - Alcohol abuse [Fatal]
  - Completed suicide [Fatal]
  - Alcohol poisoning [Recovered/Resolved]
